FAERS Safety Report 5369903-8 (Version None)
Quarter: 2007Q2

REPORT INFORMATION
  Report Type: 
  Country: None (occurrence: None)
  Receive Date: 20070621
  Receipt Date: 20070522
  Transmission Date: 20071010
  Serious: Yes (Death)
  Sender: FDA-Public Use
  Company Number: 2007S1000236

PATIENT
  Age: 73 Year
  Sex: Male

DRUGS (10)
  1. CUBICIN [Suspect]
     Indication: SOFT TISSUE INFECTION
     Dosage: 4 MG/KG;Q24H
     Dates: start: 20070511, end: 20070519
  2. ARICEPT [Suspect]
     Dosage: 10 MG; QD; PO
     Route: 048
     Dates: start: 20070507, end: 20070519
  3. ARICEPT [Concomitant]
  4. TAZOCIN [Concomitant]
  5. INSULIN HUMAN [Concomitant]
  6. PRIMPERAN INJ [Concomitant]
  7. CLEXANE [Concomitant]
  8. SACCHAROMYCES BOULARDII [Concomitant]
  9. CITALOPRAM HYDROBROMIDE [Concomitant]
  10. ALFURAL [Concomitant]

REACTIONS (3)
  - CARDIOPULMONARY FAILURE [None]
  - DISEASE PROGRESSION [None]
  - NODAL RHYTHM [None]
